FAERS Safety Report 20429925 (Version 1)
Quarter: 2022Q1

REPORT INFORMATION
  Report Type: Report from Study
  Country: DE (occurrence: DE)
  Receive Date: 20220204
  Receipt Date: 20220204
  Transmission Date: 20220424
  Serious: Yes (Hospitalization)
  Sender: FDA-Public Use
  Company Number: DE-SERVIER-S19003261

PATIENT

DRUGS (30)
  1. ONCASPAR [Suspect]
     Active Substance: PEGASPARGASE
     Indication: Acute lymphocytic leukaemia
     Dosage: 2500 IU/M2, ONE DOSE
     Route: 042
     Dates: start: 20190309, end: 20190309
  2. VENETOCLAX [Suspect]
     Active Substance: VENETOCLAX
     Indication: Acute lymphocytic leukaemia
     Dosage: 120 MG,
     Route: 048
     Dates: start: 20190306, end: 20190306
  3. VENETOCLAX [Suspect]
     Active Substance: VENETOCLAX
     Dosage: 250 MG, QD
     Route: 048
     Dates: start: 20190307, end: 20190307
  4. VENETOCLAX [Suspect]
     Active Substance: VENETOCLAX
     Dosage: 500 MG, QD
     Route: 048
     Dates: start: 20190308, end: 20190319
  5. VENETOCLAX [Suspect]
     Active Substance: VENETOCLAX
     Dosage: 500 MG, QD
     Route: 048
     Dates: start: 20190308, end: 20190319
  6. VENETOCLAX [Suspect]
     Active Substance: VENETOCLAX
     Dosage: 350 MG, QD
     Route: 048
     Dates: start: 20190320, end: 20190320
  7. VENETOCLAX [Suspect]
     Active Substance: VENETOCLAX
     Dosage: 350 MG, QD
     Route: 048
     Dates: start: 20190322, end: 20190326
  8. CYTARABINE [Suspect]
     Active Substance: CYTARABINE
     Indication: Acute lymphocytic leukaemia
     Dosage: 108 MG, QD
     Route: 042
     Dates: start: 20190309, end: 20190315
  9. ETOPOSIDE [Suspect]
     Active Substance: ETOPOSIDE
     Indication: Acute lymphocytic leukaemia
     Dosage: 100 MG/M2, ONE DOSE
     Route: 042
     Dates: start: 20190309, end: 20190309
  10. AMPHOTERICIN B [Concomitant]
     Active Substance: AMPHOTERICIN B
     Indication: Antifungal prophylaxis
     Dosage: 2 ML, TID
     Route: 048
     Dates: start: 20180404
  11. SULFAMETHOXAZOLE\TRIMETHOPRIM [Concomitant]
     Active Substance: SULFAMETHOXAZOLE\TRIMETHOPRIM
     Indication: Prophylaxis
     Dosage: 160 MG, BID, IN 1 WEEK
     Route: 048
     Dates: start: 20180406, end: 20190324
  12. PANTOPRAZOLE SODIUM [Concomitant]
     Active Substance: PANTOPRAZOLE SODIUM
     Indication: Prophylaxis
     Dosage: 20 MG, QD
     Route: 048
     Dates: start: 20180406
  13. ACYCLOVIR [Concomitant]
     Active Substance: ACYCLOVIR
     Indication: Prophylaxis
     Dosage: 200 MG, TID
     Route: 048
     Dates: start: 20181228
  14. Kalinor [Concomitant]
     Indication: Mineral supplementation
     Dosage: 40 MMOL, PRN
     Route: 048
     Dates: start: 20190126
  15. AMBISOME [Concomitant]
     Active Substance: AMPHOTERICIN B
     Indication: Prophylaxis
     Dosage: 32 MG, EVERY OTHER DAY
     Route: 042
     Dates: start: 20181229, end: 20190325
  16. TEICOPLANIN [Concomitant]
     Active Substance: TEICOPLANIN
     Indication: Prophylaxis
     Dosage: 450 MG, EVEY OTHER DAY
     Route: 042
     Dates: start: 20181219
  17. ZOFRAN [Concomitant]
     Active Substance: ONDANSETRON HYDROCHLORIDE
     Indication: Nausea
     Dosage: 6 MG, PRN
     Route: 048
     Dates: start: 20190116, end: 20190303
  18. ZOFRAN [Concomitant]
     Active Substance: ONDANSETRON HYDROCHLORIDE
     Dosage: 6 MG, PRN
     Route: 042
     Dates: start: 20190304
  19. POLYETHYLENE GLYCOLS [Concomitant]
     Active Substance: POLYETHYLENE GLYCOLS
     Indication: Constipation
     Dosage: 1 DF, QD
     Route: 048
     Dates: start: 20190305, end: 20190326
  20. MORPHINE [Concomitant]
     Active Substance: MORPHINE
     Indication: Bone pain
     Dosage: 1 MG, BID
     Route: 042
     Dates: start: 20190304, end: 20190304
  21. MORPHINE [Concomitant]
     Active Substance: MORPHINE
     Dosage: 30 MG, CONTINUOUS
     Route: 042
     Dates: start: 20190304, end: 20190307
  22. METAMIZOLE [Concomitant]
     Active Substance: METAMIZOLE
     Indication: Bone pain
     Dosage: 500 MG, BID
     Route: 048
     Dates: start: 20190304, end: 20190304
  23. METAMIZOLE [Concomitant]
     Active Substance: METAMIZOLE
     Dosage: 500 MG, QID
     Route: 048
     Dates: start: 20190305, end: 20190311
  24. CLEMASTINE [Concomitant]
     Active Substance: CLEMASTINE
     Indication: Prophylaxis
     Dosage: 2 MG, PRN
     Route: 042
     Dates: start: 20190305, end: 20190309
  25. PIPERACILLIN SODIUM\TAZOBACTAM SODIUM [Concomitant]
     Active Substance: PIPERACILLIN SODIUM\TAZOBACTAM SODIUM
     Indication: Prophylaxis
     Dosage: 3.3 MG, TID
     Route: 042
     Dates: start: 20190304, end: 20190312
  26. PIPERACILLIN SODIUM\TAZOBACTAM SODIUM [Concomitant]
     Active Substance: PIPERACILLIN SODIUM\TAZOBACTAM SODIUM
     Indication: Pyrexia
  27. SODIUM PICOSULFATE [Concomitant]
     Active Substance: SODIUM PICOSULFATE
     Indication: Constipation
     Dosage: 10 DROP, PRN
     Route: 048
     Dates: start: 20190305, end: 20190326
  28. ALIZAPRIDE HYDROCHLORIDE [Concomitant]
     Active Substance: ALIZAPRIDE HYDROCHLORIDE
     Indication: Nausea
     Dosage: 50 MG, PRN
     Route: 030
     Dates: start: 20190308, end: 20190310
  29. DIMENHYDRINATE [Concomitant]
     Active Substance: DIMENHYDRINATE
     Indication: Nausea
     Dosage: 4 ML, PRN
     Route: 042
     Dates: start: 20190310, end: 20190311
  30. ETHOXAZORUTOSIDE\SODIUM ACETATE\SODIUM CHLORIDE\SORBITOL [Concomitant]
     Active Substance: ETHOXAZORUTOSIDE\SODIUM ACETATE\SODIUM CHLORIDE\SORBITOL
     Indication: Dehydration
     Dosage: 1 L, CONTINUOUS
     Route: 042
     Dates: start: 20190304, end: 20190307

REACTIONS (1)
  - Pyrexia [Recovered/Resolved]

NARRATIVE: CASE EVENT DATE: 20190320
